FAERS Safety Report 18383623 (Version 4)
Quarter: 2021Q4

REPORT INFORMATION
  Report Type: Report from Study
  Country: US (occurrence: US)
  Receive Date: 20201014
  Receipt Date: 20211117
  Transmission Date: 20220303
  Serious: No
  Sender: FDA-Public Use
  Company Number: US-SHIRE-US201946135

PATIENT
  Sex: Female

DRUGS (2)
  1. HUMAN IMMUNOGLOBULIN G\HYALURONIDASE RECOMBINANT HUMAN [Suspect]
     Active Substance: HUMAN IMMUNOGLOBULIN G\HYALURONIDASE RECOMBINANT HUMAN
     Indication: Primary immunodeficiency syndrome
     Dosage: UNK
     Route: 065
  2. COVID-19 VACCINE NOS [Suspect]
     Active Substance: COVID-19 VACCINE NOS
     Indication: COVID-19 immunisation
     Dosage: UNK
     Route: 065

REACTIONS (13)
  - Contusion [Unknown]
  - Nodule [Unknown]
  - Illness [Not Recovered/Not Resolved]
  - Lethargy [Not Recovered/Not Resolved]
  - Device occlusion [Recovered/Resolved]
  - Joint injury [Unknown]
  - Meniscus injury [Unknown]
  - Coagulopathy [Unknown]
  - Asthenia [Unknown]
  - Pyrexia [Unknown]
  - Vaccination complication [Unknown]
  - Synovitis [Unknown]
  - Pain [Unknown]
